FAERS Safety Report 24978030 (Version 3)
Quarter: 2025Q2

REPORT INFORMATION
  Report Type: Spontaneous
  Country: GB (occurrence: GB)
  Receive Date: 20250217
  Receipt Date: 20250414
  Transmission Date: 20250716
  Serious: Yes (Congenital Anomaly, Other)
  Sender: NOVARTIS
  Company Number: None

PATIENT
  Age: 32 Year
  Sex: Female

DRUGS (7)
  1. ZOLEDRONIC ACID [Suspect]
     Active Substance: ZOLEDRONIC ACID
     Indication: Breast cancer in situ
     Dosage: 4 MG, QW (4MG IV GIVEN 6 WEEKLY 20.9.24, LAST DOSE 13.12.24)
     Route: 042
     Dates: start: 20240920, end: 20241213
  2. DOCETAXEL [Suspect]
     Active Substance: DOCETAXEL
     Indication: Breast cancer in situ
     Dosage: 100 DOSAGE FORM, QW (100MG/M2 IV GIVEN 3 WEEKLY 1.11.24, LAST DOSE 27.12.24)
     Route: 042
     Dates: start: 20241101
  3. EPIRUBICIN [Suspect]
     Active Substance: EPIRUBICIN
     Indication: Breast cancer in situ
     Route: 065
  4. EPIRUBICIN [Suspect]
     Active Substance: EPIRUBICIN
     Route: 042
     Dates: start: 20240830, end: 20241011
  5. CYCLOPHOSPHAMIDE [Suspect]
     Active Substance: CYCLOPHOSPHAMIDE
     Indication: Breast cancer in situ
     Route: 042
     Dates: start: 20240830, end: 20241011
  6. GOSERELIN [Suspect]
     Active Substance: GOSERELIN
     Indication: Breast cancer in situ
     Route: 065
  7. GOSERELIN [Suspect]
     Active Substance: GOSERELIN
     Route: 065
     Dates: start: 20240920, end: 20250110

REACTIONS (2)
  - Maternal exposure during pregnancy [Unknown]
  - Ultrasound foetal abnormal [Unknown]
